FAERS Safety Report 23001966 (Version 2)
Quarter: 2023Q4

REPORT INFORMATION
  Report Type: Spontaneous
  Country: JP (occurrence: JP)
  Receive Date: 20230928
  Receipt Date: 20231003
  Transmission Date: 20240110
  Serious: Yes (Hospitalization, Other)
  Sender: FDA-Public Use
  Company Number: JP-PFIZER INC-PV202300160815

PATIENT
  Age: 45 Year
  Sex: Female

DRUGS (4)
  1. BEVACIZUMAB [Suspect]
     Active Substance: BEVACIZUMAB
     Indication: Metastases to lung
     Dosage: 10 MG/KG, ON DAYS 1 AND 8 (ONE CYCLE WAS 28 DAYS)
  2. BEVACIZUMAB [Suspect]
     Active Substance: BEVACIZUMAB
     Indication: Breast cancer female
  3. PACLITAXEL [Concomitant]
     Active Substance: PACLITAXEL
     Indication: Metastases to lung
     Dosage: 80 MG/M2, ON DAYS 1, 8 AND 15 (ONE CYCLE WAS 28 DAYS)
  4. PACLITAXEL [Concomitant]
     Active Substance: PACLITAXEL
     Indication: Breast cancer female

REACTIONS (1)
  - Pneumothorax [Recovered/Resolved]
